FAERS Safety Report 9660919 (Version 3)
Quarter: 2014Q1

REPORT INFORMATION
  Report Type: Spontaneous
  Country: US (occurrence: US)
  Receive Date: 20131031
  Receipt Date: 20140314
  Transmission Date: 20141002
  Serious: Yes (Hospitalization)
  Sender: FDA-Public Use
  Company Number: US-UCBSA-101834

PATIENT
  Sex: Female
  Weight: 52 kg

DRUGS (1)
  1. CIMZIA [Suspect]
     Indication: CROHN^S DISEASE
     Dates: start: 20120706, end: 201310

REACTIONS (1)
  - Colitis [Recovered/Resolved]
